FAERS Safety Report 7497855-3 (Version None)
Quarter: 2011Q2

REPORT INFORMATION
  Report Type: 
  Country: None (occurrence: None)
  Receive Date: 20110524
  Receipt Date: 20100110
  Transmission Date: 20111010
  Serious: Yes (Death, Other)
  Sender: FDA-Public Use
  Company Number: US-BAYER-201010741NA

PATIENT
  Sex: Male
  Weight: 84 kg

DRUGS (15)
  1. AVAPRO [Concomitant]
     Dosage: 150MG DAILY
  2. DILANTIN [Concomitant]
     Dosage: 15CC EVERY 4 HRS
  3. ACETYLSALICYLIC ACID SRT [Concomitant]
     Dosage: 325MG DAILY
  4. PROTAMINE SULFATE [Concomitant]
     Dosage: UNK
     Dates: start: 20050314
  5. CLONIDINE [Concomitant]
     Dosage: PATCH
  6. ACTOS [Concomitant]
     Dosage: 15 DAILY
  7. LASIX [Concomitant]
     Dosage: 40MG EVERY 8 HOURS
  8. TRASYLOL [Suspect]
     Indication: CORONARY ARTERY BYPASS
     Dosage: 100ML PUMP PRIME DOSE
     Route: 042
     Dates: start: 20050514
  9. AMLODIPINE [Concomitant]
     Dosage: 10MG DAILY
  10. RED BLOOD CELLS [Concomitant]
     Dosage: 1 UNIT
  11. NITROGLYCERIN [Concomitant]
     Dosage: DRIP
     Route: 042
  12. SIMVASTATIN [Concomitant]
     Dosage: 40MG DAILY
  13. DIGOXIN [Concomitant]
     Dosage: 0.25MG DAILY
  14. INSULIN [Concomitant]
     Dosage: SLIDING SCALE
  15. PLAVIX [Concomitant]
     Dosage: 75MG DAILY

REACTIONS (11)
  - ANXIETY [None]
  - FEAR [None]
  - PAIN [None]
  - CEREBROVASCULAR ACCIDENT [None]
  - ANHEDONIA [None]
  - MYOCARDIAL INFARCTION [None]
  - INJURY [None]
  - RENAL FAILURE [None]
  - DEATH [None]
  - UNEVALUABLE EVENT [None]
  - DEPRESSION [None]
